FAERS Safety Report 17172301 (Version 1)
Quarter: 2019Q4

REPORT INFORMATION
  Report Type: Spontaneous
  Country: NL (occurrence: FR)
  Receive Date: 20191219
  Receipt Date: 20191219
  Transmission Date: 20200122
  Serious: Yes (Other)
  Sender: FDA-Public Use
  Company Number: FR-BAYER-2019-225258

PATIENT
  Age: 45 Year
  Sex: Male

DRUGS (4)
  1. IZILOX [Suspect]
     Active Substance: MOXIFLOXACIN HYDROCHLORIDE
     Indication: SINUSITIS
     Dosage: 1 DF, QD
     Route: 048
     Dates: start: 20181214, end: 20181221
  2. ASPEGIC [ACETYLSALICYLATE LYSINE] [Concomitant]
     Active Substance: ASPIRIN DL-LYSINE
     Indication: THROMBOCYTOSIS
     Dosage: UNK
     Route: 048
  3. SOLUPRED [PREDNISOLONE METASULFOBENZOATE SODIUM] [Suspect]
     Active Substance: PREDNISOLONE SODIUM METAZOATE
     Indication: SINUSITIS
     Dosage: 3 DF, QD
     Route: 048
     Dates: start: 20181214, end: 20181217
  4. BECLOSPIN [Suspect]
     Active Substance: BECLOMETHASONE DIPROPIONATE
     Indication: SINUSITIS
     Dosage: 3 DF, QD
     Route: 045
     Dates: start: 20181214

REACTIONS (1)
  - Exhibitionism [Recovered/Resolved]

NARRATIVE: CASE EVENT DATE: 20181217
